FAERS Safety Report 4925206-4 (Version None)
Quarter: 2006Q1

REPORT INFORMATION
  Report Type: 
  Country: None (occurrence: None)
  Receive Date: 20060228
  Receipt Date: 20060127
  Transmission Date: 20060701
  Serious: No
  Sender: FDA-Public Use
  Company Number: US-GLAXOSMITHKLINE-A0591271A

PATIENT
  Age: 62 Year
  Sex: Male
  Weight: 85.5 kg

DRUGS (5)
  1. AVODART [Suspect]
     Indication: BENIGN PROSTATIC HYPERPLASIA
     Dosage: .5MG PER DAY
     Route: 048
  2. ROGAINE [Concomitant]
  3. LOPRESSOR [Concomitant]
  4. METOPROLOL [Concomitant]
  5. UNKNOWN MEDICATION [Concomitant]

REACTIONS (2)
  - RASH [None]
  - SKIN EXFOLIATION [None]
